FAERS Safety Report 23396465 (Version 5)
Quarter: 2024Q3

REPORT INFORMATION
  Report Type: Report from Study
  Country: US (occurrence: US)
  Receive Date: 20240112
  Receipt Date: 20240930
  Transmission Date: 20241017
  Serious: Yes (Other)
  Sender: NOVARTIS
  Company Number: US-002147023-NVSC2024US003418

PATIENT
  Age: 63 Year
  Sex: Female
  Weight: 93.25 kg

DRUGS (3)
  1. KISQALI [Suspect]
     Active Substance: RIBOCICLIB
     Indication: Product used for unknown indication
     Dosage: UNK
     Route: 065
  2. KISQALI [Suspect]
     Active Substance: RIBOCICLIB
     Dosage: 400 MG, QD FOR 3 WEEKS AND 1 WEEK OFF
     Route: 048
     Dates: start: 20231228, end: 20240118
  3. KISQALI [Suspect]
     Active Substance: RIBOCICLIB
     Dosage: 400 MG, QD FOR 3 WEEKS AND 1 WEEK OFF
     Route: 048
     Dates: start: 20240125, end: 20240215

REACTIONS (4)
  - Metastases to spine [Not Recovered/Not Resolved]
  - Back pain [Recovered/Resolved]
  - Liver tenderness [Unknown]
  - Tumour marker decreased [Unknown]

NARRATIVE: CASE EVENT DATE: 20231201
